FAERS Safety Report 8100832-2 (Version None)
Quarter: 2012Q1

REPORT INFORMATION
  Report Type: 
  Country: None (occurrence: None)
  Receive Date: 20120129
  Receipt Date: 20111014
  Transmission Date: 20120608
  Serious: No
  Sender: FDA-Public Use
  Company Number: US-ABBOTT-11P-163-0864819-00

PATIENT
  Age: 60 Year
  Sex: Female

DRUGS (4)
  1. LORAZEPAM [Concomitant]
     Indication: PRODUCT USED FOR UNKNOWN INDICATION
     Dosage: AT BEDTIME
  2. HUMIRA [Suspect]
     Indication: RHEUMATOID ARTHRITIS
     Dates: start: 20110824
  3. DILTIAZEM HCL [Concomitant]
     Indication: RAYNAUD'S PHENOMENON
  4. DILTIAZEM HCL [Concomitant]
     Indication: PALPITATIONS

REACTIONS (1)
  - URTICARIA [None]
